FAERS Safety Report 18998129 (Version 2)
Quarter: 2022Q4

REPORT INFORMATION
  Report Type: Spontaneous
  Country: US (occurrence: US)
  Receive Date: 20210311
  Receipt Date: 20221012
  Transmission Date: 20230113
  Serious: Yes (Death, Hospitalization, Other)
  Sender: FDA-Public Use
  Company Number: US-JNJFOC-20170820911

PATIENT

DRUGS (3)
  1. IBRUTINIB [Suspect]
     Active Substance: IBRUTINIB
     Indication: Chronic lymphocytic leukaemia
     Route: 048
  2. UBLITUXIMAB [Suspect]
     Active Substance: UBLITUXIMAB
     Indication: Product used for unknown indication
     Dosage: D1,8,15 OF CYCLE 1. D1 OF CYCLE 2-6 AND Q3 CYCLES THEREAFTER
     Route: 042
  3. UBLITUXIMAB [Suspect]
     Active Substance: UBLITUXIMAB
     Indication: Product used for unknown indication
     Dosage: D1,8,15 OF CYCLE 1. D1 OF CYCLE 2-6 AND Q3 CYCLES THEREAFTER
     Route: 042

REACTIONS (72)
  - Death [Fatal]
  - Cardiac arrest [Fatal]
  - Cerebral infarction [Fatal]
  - Haemorrhage intracranial [Fatal]
  - Pneumocystis jirovecii pneumonia [Fatal]
  - Febrile neutropenia [Unknown]
  - Atrial fibrillation [Unknown]
  - Neutropenia [Unknown]
  - Pneumonia [Unknown]
  - Sepsis [Unknown]
  - Anaemia [Unknown]
  - Diarrhoea [Unknown]
  - Myalgia [Unknown]
  - Dizziness [Unknown]
  - Contusion [Unknown]
  - Fatigue [Unknown]
  - Dry skin [Unknown]
  - Stomatitis [Unknown]
  - Retroperitoneal haemorrhage [Unknown]
  - Urinary tract infection [Unknown]
  - Insomnia [Unknown]
  - Herpes zoster [Unknown]
  - Dysphagia [Unknown]
  - Hypokalaemia [Unknown]
  - Upper-airway cough syndrome [Unknown]
  - Chills [Unknown]
  - Treatment noncompliance [Unknown]
  - Tumour lysis syndrome [Unknown]
  - Pain in extremity [Unknown]
  - Dry mouth [Unknown]
  - Confusional state [Unknown]
  - Pneumonitis [Unknown]
  - Back pain [Unknown]
  - Fall [Unknown]
  - Constipation [Unknown]
  - Hypomagnesaemia [Unknown]
  - Rash maculo-papular [Unknown]
  - Sinusitis [Unknown]
  - Depression [Unknown]
  - Hypertension [Unknown]
  - Nasal congestion [Unknown]
  - Productive cough [Unknown]
  - Muscle spasms [Unknown]
  - Oropharyngeal pain [Unknown]
  - Pleural effusion [Unknown]
  - Dyspepsia [Unknown]
  - Nasopharyngitis [Unknown]
  - Upper respiratory tract infection [Unknown]
  - Decreased appetite [Unknown]
  - Hypogammaglobulinaemia [Unknown]
  - Oedema peripheral [Unknown]
  - Epistaxis [Unknown]
  - Cough [Unknown]
  - Neutropenic infection [Unknown]
  - Bronchitis [Unknown]
  - Dysgeusia [Unknown]
  - Pyrexia [Unknown]
  - Palpitations [Unknown]
  - Vomiting [Unknown]
  - Blood creatinine increased [Unknown]
  - Anxiety [Unknown]
  - Dyspnoea [Unknown]
  - Rash [Unknown]
  - Cellulitis staphylococcal [Unknown]
  - Hyponatraemia [Unknown]
  - Arthralgia [Unknown]
  - Haemorrhagic disorder [Unknown]
  - Dyspnoea exertional [Unknown]
  - Nausea [Unknown]
  - Thrombocytopenia [Unknown]
  - Headache [Unknown]
  - Abdominal pain [Unknown]
